FAERS Safety Report 4407231-5 (Version None)
Quarter: 2004Q3

REPORT INFORMATION
  Report Type: 
  Country: None (occurrence: None)
  Receive Date: 20040723
  Receipt Date: 20040723
  Transmission Date: 20050211
  Serious: Yes (Disabling, Other)
  Sender: FDA-Public Use
  Company Number: None

PATIENT
  Sex: Female
  Weight: 76.2043 kg

DRUGS (2)
  1. ZOLOFT [Suspect]
     Indication: DEPRESSION
     Dosage: 50 MG PER DAY ORAL
     Route: 048
  2. ZOLOFT [Suspect]
     Indication: PREMENSTRUAL SYNDROME
     Dosage: 50 MG PER DAY ORAL
     Route: 048

REACTIONS (3)
  - MUSCLE TWITCHING [None]
  - MUSCULAR WEAKNESS [None]
  - PAIN [None]
